FAERS Safety Report 24465548 (Version 1)
Quarter: 2024Q4

REPORT INFORMATION
  Report Type: Spontaneous
  Country: US (occurrence: US)
  Receive Date: 20241018
  Receipt Date: 20241018
  Transmission Date: 20250114
  Serious: No
  Sender: ROCHE
  Company Number: US-ROCHE-3526562

PATIENT
  Age: 40 Year
  Sex: Female
  Weight: 81.65 kg

DRUGS (12)
  1. XOLAIR [Suspect]
     Active Substance: OMALIZUMAB
     Indication: Urticaria
     Dosage: 2 ND DOSE : 26/MAR/2024
     Route: 065
     Dates: start: 20231103
  2. CLARITIN [Concomitant]
     Active Substance: LORATADINE
  3. ZYRTEC [Concomitant]
     Active Substance: CETIRIZINE HYDROCHLORIDE
  4. BENADRYL [Concomitant]
     Active Substance: DIPHENHYDRAMINE HYDROCHLORIDE
  5. EPIPEN [Concomitant]
     Active Substance: EPINEPHRINE
  6. LORATADINE [Concomitant]
     Active Substance: LORATADINE
     Indication: Urticaria
  7. FAMOTIDINE [Concomitant]
     Active Substance: FAMOTIDINE
     Indication: Urticaria
  8. MONTELUKAST [Concomitant]
     Active Substance: MONTELUKAST
     Indication: Urticaria
  9. CETIRIZINE [Concomitant]
     Active Substance: CETIRIZINE HYDROCHLORIDE
     Indication: Urticaria
  10. ALBUTEROL SULFATE [Concomitant]
     Active Substance: ALBUTEROL SULFATE
     Indication: Asthma
  11. BUDESONIDE [Concomitant]
     Active Substance: BUDESONIDE
     Indication: Asthma
  12. FORMOTEROL [Concomitant]
     Active Substance: FORMOTEROL
     Indication: Asthma

REACTIONS (1)
  - Urticaria [Not Recovered/Not Resolved]
